FAERS Safety Report 5885324-3 (Version None)
Quarter: 2008Q3

REPORT INFORMATION
  Report Type: 
  Country: None (occurrence: None)
  Receive Date: 20080915
  Receipt Date: 20080915
  Transmission Date: 20090109
  Serious: Yes (Other)
  Sender: FDA-Public Use
  Company Number: None

PATIENT
  Age: 56 Year
  Sex: Male
  Weight: 117.9352 kg

DRUGS (2)
  1. DEFINITY [Suspect]
     Indication: SCAN WITH CONTRAST
     Dosage: ONCE DOSE IV DRIP
     Route: 041
     Dates: start: 20080819, end: 20080819
  2. DEFINITY [Suspect]
     Indication: ULTRASOUND DOPPLER
     Dosage: ONCE DOSE IV DRIP
     Route: 041
     Dates: start: 20080819, end: 20080819

REACTIONS (4)
  - ARTHRALGIA [None]
  - BACK PAIN [None]
  - CONTRAST MEDIA REACTION [None]
  - NECK PAIN [None]
